FAERS Safety Report 21856733 (Version 1)
Quarter: 2023Q1

REPORT INFORMATION
  Report Type: Spontaneous
  Country: IR (occurrence: IR)
  Receive Date: 20230113
  Receipt Date: 20230113
  Transmission Date: 20230417
  Serious: Yes (Hospitalization)
  Sender: FDA-Public Use
  Company Number: IR-BoehringerIngelheim-2023-BI-211513

PATIENT
  Age: 87 Year
  Sex: Male

DRUGS (1)
  1. METALYSE [Suspect]
     Active Substance: TENECTEPLASE
     Indication: Cerebrovascular accident
     Dosage: TENECTEPLASE 4000 IU, IV
     Route: 042

REACTIONS (2)
  - Cerebral haemorrhage [Unknown]
  - Off label use [Unknown]
